FAERS Safety Report 10376859 (Version 1)
Quarter: 2014Q1

REPORT INFORMATION
  Report Type: Spontaneous
  Country: US (occurrence: None)
  Receive Date: 20140306
  Receipt Date: 20140306
  Transmission Date: 20141002
  Serious: Yes (Other)
  Sender: FDA-Public Use
  Company Number: 163-21880-13121698

PATIENT
  Age: 58 Year
  Sex: Female
  Weight: 68.49 kg

DRUGS (9)
  1. REVLIMID (LENALIDOMIDE) (25 MILLIGRAM, CAPSULES) [Suspect]
     Indication: PLASMA CELL MYELOMA
     Route: 048
     Dates: start: 20130822
  2. CALCIUM CARBONATE (CALCIUM CARBONATE) (CHEWABLE TABLET) [Concomitant]
  3. DEXAMETHASONE [Concomitant]
  4. FUROSEMIDE [Concomitant]
  5. HYDROMORPHONE [Concomitant]
  6. METHADONE [Concomitant]
  7. OMEPRAZOLE [Concomitant]
  8. POTASSIUM [Concomitant]
  9. PROCHLORPERAZINE [Concomitant]

REACTIONS (1)
  - Pancytopenia [None]
